FAERS Safety Report 23853088 (Version 3)
Quarter: 2024Q2

REPORT INFORMATION
  Report Type: Report from Study
  Country: US (occurrence: US)
  Receive Date: 20240514
  Receipt Date: 20240630
  Transmission Date: 20240716
  Serious: Yes (Other)
  Sender: FDA-Public Use
  Company Number: US-E2BLSMVVAL-CLI/USA/24/0007034

PATIENT
  Age: 27 Year
  Sex: Female

DRUGS (7)
  1. DARUNAVIR [Suspect]
     Active Substance: DARUNAVIR
     Indication: HIV infection
     Route: 065
     Dates: start: 20210716
  2. DARUNAVIR [Suspect]
     Active Substance: DARUNAVIR
     Dates: start: 20210716
  3. TENOFOVIR DISOPROXIL FUMARATE [Concomitant]
     Active Substance: TENOFOVIR DISOPROXIL FUMARATE
     Indication: Antiviral treatment
     Route: 048
     Dates: start: 20220901
  4. DARUNAVIR [Concomitant]
     Active Substance: DARUNAVIR
     Indication: Antiviral treatment
     Route: 048
     Dates: start: 20210716
  5. DOLUTEGRAVIR [Concomitant]
     Active Substance: DOLUTEGRAVIR
     Indication: Antiviral treatment
     Route: 048
     Dates: start: 20220901
  6. RITONAVIR [Concomitant]
     Active Substance: RITONAVIR
     Indication: Antiviral treatment
     Route: 048
     Dates: start: 20170414
  7. FOLATE SUPPLEMENT [Concomitant]
     Indication: Product used for unknown indication
     Route: 065

REACTIONS (2)
  - Exposure during pregnancy [Recovered/Resolved]
  - Premature delivery [Unknown]
